FAERS Safety Report 9375377 (Version 1)
Quarter: 2013Q2

REPORT INFORMATION
  Report Type: Other
  Country: AT (occurrence: AT)
  Receive Date: 20130628
  Receipt Date: 20130628
  Transmission Date: 20140414
  Serious: Yes (Other)
  Sender: FDA-Public Use
  Company Number: AT-EISAI INC-E7272-00198-SPO-AT

PATIENT
  Age: 82 Year
  Sex: Female

DRUGS (1)
  1. ONTAK [Suspect]
     Indication: MYCOSIS FUNGOIDES
     Route: 041

REACTIONS (2)
  - Hypotension [Unknown]
  - Dermatitis [Unknown]
